FAERS Safety Report 5904180-8 (Version None)
Quarter: 2008Q4

REPORT INFORMATION
  Report Type: 
  Country: None (occurrence: None)
  Receive Date: 20081001
  Receipt Date: 20080923
  Transmission Date: 20090506
  Serious: Yes (Other)
  Sender: FDA-Public Use
  Company Number: GB-TEVA-177824ISR

PATIENT
  Age: 9 Year
  Sex: Female

DRUGS (1)
  1. CETIRIZINE HCL [Suspect]
     Route: 048
     Dates: start: 20080809

REACTIONS (4)
  - DRUG DISPENSING ERROR [None]
  - EYE PRURITUS [None]
  - HYPERSENSITIVITY [None]
  - PARAESTHESIA ORAL [None]
